FAERS Safety Report 4323691-2 (Version None)
Quarter: 2004Q1

REPORT INFORMATION
  Report Type: 
  Country: None (occurrence: None)
  Receive Date: 20040323
  Receipt Date: 20040303
  Transmission Date: 20041129
  Serious: Yes (Disabling)
  Sender: FDA-Public Use
  Company Number: 2004AP01385

PATIENT
  Age: 61 Year
  Sex: Male
  Weight: 70 kg

DRUGS (6)
  1. LOSEC HP7 [Suspect]
     Indication: HELICOBACTER INFECTION
     Dates: start: 20031201, end: 20031207
  2. LOSEC HP7 [Suspect]
     Indication: PEPTIC ULCER
     Dates: start: 20031201, end: 20031207
  3. AMOXICILLIN [Suspect]
     Indication: HELICOBACTER INFECTION
     Dates: start: 20031201, end: 20031207
  4. AMOXICILLIN [Suspect]
     Indication: PEPTIC ULCER
     Dates: start: 20031201, end: 20031207
  5. CLARITHROMYCIN [Suspect]
     Indication: HELICOBACTER INFECTION
     Dates: start: 20031201, end: 20031207
  6. CLARITHROMYCIN [Suspect]
     Indication: PEPTIC ULCER
     Dates: start: 20031201, end: 20031207

REACTIONS (2)
  - DYSGEUSIA [None]
  - WEIGHT DECREASED [None]
